FAERS Safety Report 14861396 (Version 2)
Quarter: 2018Q2

REPORT INFORMATION
  Report Type: Spontaneous
  Country: FR (occurrence: FR)
  Receive Date: 20180508
  Receipt Date: 20180510
  Transmission Date: 20180711
  Serious: Yes (Hospitalization, Other)
  Sender: FDA-Public Use
  Company Number: FR-JNJFOC-20180503166

PATIENT
  Age: 19 Year
  Sex: Male

DRUGS (6)
  1. RISPERDAL [Suspect]
     Active Substance: RISPERIDONE
     Indication: PRODUCT USED FOR UNKNOWN INDICATION
     Route: 048
     Dates: start: 201804, end: 20180427
  2. LOXAPAC [Concomitant]
     Active Substance: LOXAPINE
     Route: 065
     Dates: start: 20180424
  3. XEPLION [Suspect]
     Active Substance: PALIPERIDONE PALMITATE
     Indication: PRODUCT USED FOR UNKNOWN INDICATION
     Route: 065
     Dates: start: 20180423, end: 20180427
  4. LOXAPAC [Concomitant]
     Active Substance: LOXAPINE
     Route: 065
     Dates: end: 20180421
  5. SERESTA [Concomitant]
     Active Substance: OXAZEPAM
     Route: 065
     Dates: start: 20180421
  6. SERESTA [Concomitant]
     Active Substance: OXAZEPAM
     Dosage: STRENGTH: 50 MG, DOSE: HALF TABLET
     Route: 065
     Dates: end: 201804

REACTIONS (13)
  - Drooling [Recovered/Resolved]
  - Rhabdomyolysis [Unknown]
  - Extrapyramidal disorder [Unknown]
  - Aggression [Unknown]
  - Sedation [Unknown]
  - C-reactive protein increased [Unknown]
  - Somnolence [Unknown]
  - Bronchial obstruction [Unknown]
  - Mydriasis [Not Recovered/Not Resolved]
  - White blood cell count increased [Unknown]
  - Catatonia [Unknown]
  - Delusion [Unknown]
  - Agitation [Unknown]

NARRATIVE: CASE EVENT DATE: 2018
